FAERS Safety Report 8575224-2 (Version None)
Quarter: 2012Q3

REPORT INFORMATION
  Report Type: 
  Country: None (occurrence: None)
  Receive Date: 20120807
  Receipt Date: 20120725
  Transmission Date: 20120928
  Serious: Yes (Hospitalization, Other)
  Sender: FDA-Public Use
  Company Number: US-JNJFOC-20120713582

PATIENT
  Sex: Female
  Weight: 71.67 kg

DRUGS (2)
  1. DURAGESIC-100 [Suspect]
     Indication: SPINAL DISORDER
     Route: 062
     Dates: start: 20020101, end: 20040101
  2. DURAGESIC-100 [Suspect]
     Route: 062
     Dates: start: 20100101

REACTIONS (8)
  - BONE CYST [None]
  - BACK PAIN [None]
  - NECK PAIN [None]
  - EXTRASKELETAL OSSIFICATION [None]
  - IMPAIRED HEALING [None]
  - SPINAL LIGAMENT OSSIFICATION [None]
  - PRODUCT QUALITY ISSUE [None]
  - DRUG DOSE OMISSION [None]
